FAERS Safety Report 18191304 (Version 2)
Quarter: 2020Q3

REPORT INFORMATION
  Report Type: Report from Study
  Country: JP (occurrence: JP)
  Receive Date: 20200824
  Receipt Date: 20200903
  Transmission Date: 20201103
  Serious: Yes (Death, Other)
  Sender: FDA-Public Use
  Company Number: JP-SAKK-2020SA220729AA

PATIENT

DRUGS (5)
  1. IRINOTECAN [Concomitant]
     Active Substance: IRINOTECAN
     Indication: COLON CANCER
     Dosage: 0.6 PER 1 CYCLE, 80%
     Route: 065
  2. IRINOTECAN [Concomitant]
     Active Substance: IRINOTECAN
     Dosage: 0.6 PER 1 CYCLE, 60%
     Route: 065
  3. 5?FU [FLUOROURACIL] [Concomitant]
     Active Substance: FLUOROURACIL
     Indication: COLON CANCER
     Dosage: 0.8 PER 1 CYCLE, 80%
     Route: 065
  4. AFLIBERCEPT [Suspect]
     Active Substance: AFLIBERCEPT
     Indication: COLON CANCER
     Dosage: UNK
     Route: 041
     Dates: start: 20180518, end: 20181123
  5. LEUCOVORIN AMAXA [Concomitant]
     Indication: COLON CANCER
     Route: 065

REACTIONS (9)
  - Neutrophil count decreased [Unknown]
  - Decreased appetite [Unknown]
  - Constipation [Unknown]
  - Nervous system disorder [Unknown]
  - Protein urine [Unknown]
  - Malaise [Unknown]
  - Fatigue [Unknown]
  - Death [Fatal]
  - Taste disorder [Unknown]

NARRATIVE: CASE EVENT DATE: 2018
